FAERS Safety Report 5764862-8 (Version None)
Quarter: 2008Q2

REPORT INFORMATION
  Report Type: 
  Country: None (occurrence: None)
  Receive Date: 20080611
  Receipt Date: 20080530
  Transmission Date: 20081010
  Serious: Yes (Hospitalization, Other)
  Sender: FDA-Public Use
  Company Number: CA-ELI_LILLY_AND_COMPANY-CA200806000137

PATIENT
  Age: 51 Year
  Sex: Female

DRUGS (18)
  1. FORTEO [Suspect]
     Indication: OSTEOPOROSIS
     Dosage: 20 UG, DAILY (1/D)
     Route: 058
     Dates: start: 20070523, end: 20080509
  2. PERCOCET [Concomitant]
  3. NEXIUM [Concomitant]
  4. DOMPERIDONE [Concomitant]
  5. EFFEXOR [Concomitant]
  6. APO-CAL [Concomitant]
  7. IRON PREPARATIONS [Concomitant]
  8. DRISDOL [Concomitant]
  9. RIVOTRIL [Concomitant]
  10. FLEXERIL [Concomitant]
  11. NOVOQUININE [Concomitant]
  12. ELAVIL [Concomitant]
  13. DALMANE [Concomitant]
  14. SINGULAIR [Concomitant]
  15. VENTOLIN                                /SCH/ [Concomitant]
  16. ADVAIR DISKUS 100/50 [Concomitant]
  17. SPIRIVA [Concomitant]
  18. COUMADIN [Concomitant]

REACTIONS (3)
  - PHLEBITIS [None]
  - PNEUMONIA [None]
  - PULMONARY EMBOLISM [None]
